FAERS Safety Report 5054153-5 (Version None)
Quarter: 2006Q3

REPORT INFORMATION
  Report Type: 
  Country: None (occurrence: None)
  Receive Date: 20060718
  Receipt Date: 20060707
  Transmission Date: 20061208
  Serious: Yes (Other)
  Sender: FDA-Public Use
  Company Number: US-JNJFOC-20060701428

PATIENT
  Sex: Male
  Weight: 71.22 kg

DRUGS (2)
  1. CONCERTA [Suspect]
     Indication: ATTENTION DEFICIT/HYPERACTIVITY DISORDER
     Route: 048
  2. RITALIN [Concomitant]

REACTIONS (3)
  - EYELID FUNCTION DISORDER [None]
  - FEELING ABNORMAL [None]
  - INTRAOCULAR PRESSURE INCREASED [None]
